FAERS Safety Report 14195319 (Version 1)
Quarter: 2017Q4

REPORT INFORMATION
  Report Type: Spontaneous
  Country: US (occurrence: US)
  Receive Date: 20171116
  Receipt Date: 20171116
  Transmission Date: 20180321
  Serious: No
  Sender: FDA-Public Use
  Company Number: US-PERRIGO-17US003120

PATIENT
  Sex: Female
  Weight: 70.3 kg

DRUGS (5)
  1. MUPIROCIN. [Suspect]
     Active Substance: MUPIROCIN
     Dosage: ONE INCH, QD TO BID
     Route: 045
  2. MUPIROCIN. [Suspect]
     Active Substance: MUPIROCIN
     Dosage: ONE INCH, QD TO BID
     Route: 045
  3. MUPIROCIN. [Suspect]
     Active Substance: MUPIROCIN
     Dosage: ONE INCH, QD TO BID
     Route: 045
  4. MUPIROCIN. [Suspect]
     Active Substance: MUPIROCIN
     Dosage: ONE INCH, QD TO BID
     Route: 045
  5. MUPIROCIN. [Suspect]
     Active Substance: MUPIROCIN
     Indication: INFECTION PROPHYLAXIS
     Dosage: ONE INCH, QD TO BID
     Route: 045
     Dates: start: 2015

REACTIONS (5)
  - Therapeutic response unexpected [Unknown]
  - Drug administered at inappropriate site [Unknown]
  - Incorrect drug administration duration [Not Recovered/Not Resolved]
  - Off label use [Unknown]
  - Wrong technique in product usage process [Not Recovered/Not Resolved]

NARRATIVE: CASE EVENT DATE: 2015
